FAERS Safety Report 9572022 (Version 2)
Quarter: 2013Q4

REPORT INFORMATION
  Report Type: Spontaneous
  Country: US (occurrence: US)
  Receive Date: 20131001
  Receipt Date: 20131001
  Transmission Date: 20140711
  Serious: No
  Sender: FDA-Public Use
  Company Number: US-PURDUE-USA-2011-0070073

PATIENT
  Age: 47 Year
  Sex: Female
  Weight: 70.75 kg

DRUGS (1)
  1. BUTRANS [Suspect]
     Indication: INTERVERTEBRAL DISC DISORDER
     Dosage: 10 MCG/HR, DAILY
     Dates: start: 20110721

REACTIONS (4)
  - Pruritus [Recovered/Resolved]
  - Rash [Recovered/Resolved]
  - Nausea [Unknown]
  - Headache [Unknown]
